FAERS Safety Report 24699686 (Version 1)
Quarter: 2024Q4

REPORT INFORMATION
  Report Type: Report from Study
  Country: CA (occurrence: CA)
  Receive Date: 20241205
  Receipt Date: 20241205
  Transmission Date: 20250114
  Serious: Yes (Other)
  Sender: ROCHE
  Company Number: CA-ROCHE-10000107677

PATIENT
  Sex: Female

DRUGS (2)
  1. OCREVUS [Suspect]
     Active Substance: OCRELIZUMAB
     Indication: Relapsing-remitting multiple sclerosis
     Dosage: 300 MG AT DAY 0 AND 14, THEN 600 MG EVERY 6 MONTH
     Route: 042
     Dates: start: 20220407
  2. NAPROXEN [Concomitant]
     Active Substance: NAPROXEN
     Dosage: MORE DOSAGE INFORMATION IS NOT PROVIDED

REACTIONS (2)
  - Dysmenorrhoea [Unknown]
  - Uterine leiomyoma [Unknown]
